FAERS Safety Report 12467656 (Version 1)
Quarter: 2016Q2

REPORT INFORMATION
  Report Type: Spontaneous
  Country: US (occurrence: None)
  Receive Date: 20160614
  Receipt Date: 20160614
  Transmission Date: 20160815
  Serious: No
  Sender: FDA-Public Use
  Company Number: None

PATIENT

DRUGS (2)
  1. POTASSIUM CHLORIDE. [Suspect]
     Active Substance: POTASSIUM CHLORIDE
     Dosage: INJECTABLE INJECTION 10 MEQ SINGLE DOSE VIAL 5 ML?
  2. POTASSIUM CHLORIDE. [Suspect]
     Active Substance: POTASSIUM CHLORIDE
     Dosage: INJECTABLE INJECTION 20 MEQ SINGLE DOSE VIAL 10 ML

REACTIONS (1)
  - Product packaging confusion [None]
